FAERS Safety Report 4788508-0 (Version None)
Quarter: 2005Q4

REPORT INFORMATION
  Report Type: 
  Country: None (occurrence: None)
  Receive Date: 20051005
  Receipt Date: 20051005
  Transmission Date: 20060501
  Serious: Yes (Hospitalization)
  Sender: FDA-Public Use
  Company Number: None

PATIENT
  Age: 20 Year
  Sex: Female

DRUGS (2)
  1. ACETAMINOPHEN [Suspect]
     Indication: HEADACHE
     Dosage: PO QD
     Route: 048
     Dates: start: 20050304
  2. ACETAMINOPHEN [Suspect]
     Indication: RASH
     Dosage: PO QD
     Route: 048
     Dates: start: 20050304

REACTIONS (2)
  - ANALGESIC DRUG LEVEL INCREASED [None]
  - LOSS OF CONSCIOUSNESS [None]
